FAERS Safety Report 6817742-0 (Version None)
Quarter: 2010Q3

REPORT INFORMATION
  Report Type: 
  Country: None (occurrence: None)
  Receive Date: 20100706
  Receipt Date: 20100629
  Transmission Date: 20110219
  Serious: Yes (Other)
  Sender: FDA-Public Use
  Company Number: DE-AMGEN-KDL416832

PATIENT
  Sex: Female
  Weight: 63 kg

DRUGS (7)
  1. ARANESP [Suspect]
     Indication: PRODUCT USED FOR UNKNOWN INDICATION
     Dates: start: 20091001
  2. BLOPRESS [Suspect]
     Dates: start: 20080831, end: 20090901
  3. MARCUMAR [Concomitant]
     Dates: start: 20010601
  4. PROGRAF [Concomitant]
     Dates: start: 20010601
  5. PREDNISOLON [Concomitant]
     Dates: start: 20010601
  6. ALLOPURINOL [Concomitant]
     Dates: start: 20010601
  7. TORESAMIDE [Concomitant]
     Dates: start: 20010601

REACTIONS (1)
  - DRUG INEFFECTIVE [None]
